FAERS Safety Report 11143754 (Version 4)
Quarter: 2020Q4

REPORT INFORMATION
  Report Type: Report from Study
  Country: US (occurrence: US)
  Receive Date: 20150528
  Receipt Date: 20201014
  Transmission Date: 20210113
  Serious: Yes (Disabling, Other)
  Sender: FDA-Public Use
  Company Number: US-SA-2013SA105182

PATIENT
  Age: 60 Year
  Sex: Female
  Weight: 72.12 kg

DRUGS (9)
  1. TRAMADOL. [Concomitant]
     Active Substance: TRAMADOL
     Indication: PAIN
     Dosage: 1 DF,TID
     Dates: start: 1989
  2. VITAMINS NOS [Concomitant]
     Active Substance: VITAMINS
     Indication: PROPHYLAXIS
     Dosage: 1 DF,QD
     Dates: start: 1988
  3. TERIFLUNOMIDE. [Suspect]
     Active Substance: TERIFLUNOMIDE
     Dosage: 14 MG, QD
     Route: 048
     Dates: start: 20130807, end: 20150203
  4. BACLOFEN. [Concomitant]
     Active Substance: BACLOFEN
     Indication: MUSCLE SPASTICITY
     Dosage: 1 DF,TID
     Dates: start: 2000
  5. HYDROCHLOROTHIAZIDE. [Concomitant]
     Active Substance: HYDROCHLOROTHIAZIDE
     Indication: JOINT SWELLING
     Dosage: 1 DF,QD
     Dates: start: 1989
  6. TRAMADOL. [Concomitant]
     Active Substance: TRAMADOL
     Indication: RESTLESS LEGS SYNDROME
  7. TERIFLUNOMIDE. [Suspect]
     Active Substance: TERIFLUNOMIDE
     Indication: MULTIPLE SCLEROSIS
     Dosage: 14 MG,QD
     Route: 048
     Dates: start: 20130722
  8. TERIFLUNOMIDE. [Suspect]
     Active Substance: TERIFLUNOMIDE
     Dosage: 14 MG,QD
     Route: 048
     Dates: start: 2015, end: 20150707
  9. PRAMIPEXOLE DIHYDROCHLORIDE. [Concomitant]
     Active Substance: PRAMIPEXOLE DIHYDROCHLORIDE
     Indication: RESTLESS LEGS SYNDROME
     Dosage: 1 DF,QD
     Dates: start: 2000

REACTIONS (9)
  - Multiple sclerosis [Unknown]
  - Fatigue [Unknown]
  - Blood pressure decreased [Unknown]
  - Walking aid user [Unknown]
  - Alopecia [Not Recovered/Not Resolved]
  - Hypoaesthesia [Unknown]
  - Loss of control of legs [Unknown]
  - Carpal tunnel syndrome [Unknown]
  - Grip strength decreased [Unknown]

NARRATIVE: CASE EVENT DATE: 201308
